FAERS Safety Report 15597801 (Version 1)
Quarter: 2018Q4

REPORT INFORMATION
  Report Type: Spontaneous
  Country: IL (occurrence: IL)
  Receive Date: 20181108
  Receipt Date: 20181108
  Transmission Date: 20190205
  Serious: Yes (Hospitalization)
  Sender: FDA-Public Use
  Company Number: IL-BAYER-RCH-347780

PATIENT
  Age: 11 Year
  Sex: Male
  Weight: 30 kg

DRUGS (3)
  1. ASPIRIN. [Suspect]
     Active Substance: ASPIRIN
     Indication: RHEUMATIC FEVER
     Dosage: 100 MG/KG (DAILY DOSE), , UNKNOWN
     Route: 065
  2. ASPIRIN. [Suspect]
     Active Substance: ASPIRIN
     Indication: RHEUMATIC FEVER
     Dosage: ON DISCHARGE.6
     Route: 065
  3. ASPIRIN. [Suspect]
     Active Substance: ASPIRIN
     Indication: RHEUMATIC FEVER
     Dosage: 50 MG/KG (DAILY DOSE), , UNKNOWN
     Route: 065

REACTIONS (1)
  - Renal papillary necrosis [Recovered/Resolved]
